FAERS Safety Report 24055612 (Version 4)
Quarter: 2024Q3

REPORT INFORMATION
  Report Type: Spontaneous
  Country: CN (occurrence: CN)
  Receive Date: 20240705
  Receipt Date: 20240807
  Transmission Date: 20241017
  Serious: Yes (Hospitalization)
  Sender: BEIGENE
  Company Number: CN-BEIGENE-BGN-2024-010482

PATIENT

DRUGS (11)
  1. TISLELIZUMAB [Suspect]
     Active Substance: TISLELIZUMAB
     Indication: Small cell lung cancer
     Dosage: UNK
     Dates: start: 20240404
  2. TISLELIZUMAB [Suspect]
     Active Substance: TISLELIZUMAB
     Dosage: UNK
     Dates: start: 20240428
  3. TISLELIZUMAB [Suspect]
     Active Substance: TISLELIZUMAB
     Dosage: UNK
     Dates: start: 20240522
  4. NEDAPLATIN [Concomitant]
     Active Substance: NEDAPLATIN
     Indication: Small cell lung cancer
     Dosage: UNK
     Dates: start: 20240404
  5. ETOPOSIDE [Concomitant]
     Active Substance: ETOPOSIDE
     Indication: Small cell lung cancer
     Dosage: UNK
     Dates: start: 20240404
  6. ETOPOSIDE [Concomitant]
     Active Substance: ETOPOSIDE
     Dosage: UNK
     Dates: start: 20240428
  7. ETOPOSIDE [Concomitant]
     Active Substance: ETOPOSIDE
     Dosage: UNK
     Dates: start: 20240522
  8. CARBOPLATIN [Concomitant]
     Active Substance: CARBOPLATIN
     Indication: Small cell lung cancer
     Dosage: UNK
     Dates: start: 20240428
  9. CARBOPLATIN [Concomitant]
     Active Substance: CARBOPLATIN
     Dosage: UNK
     Dates: start: 20240522
  10. CATEQUENTINIB [Concomitant]
     Active Substance: CATEQUENTINIB
     Indication: Small cell lung cancer
     Dosage: UNK
     Dates: start: 20240428
  11. CATEQUENTINIB [Concomitant]
     Active Substance: CATEQUENTINIB
     Dosage: UNK
     Dates: start: 20240522

REACTIONS (2)
  - Visual acuity reduced [Recovering/Resolving]
  - Optic neuritis [Recovering/Resolving]

NARRATIVE: CASE EVENT DATE: 20240616
